FAERS Safety Report 8176138-2 (Version None)
Quarter: 2012Q1

REPORT INFORMATION
  Report Type: 
  Country: None (occurrence: None)
  Receive Date: 20120301
  Receipt Date: 20120228
  Transmission Date: 20120608
  Serious: Yes (Death, Hospitalization)
  Sender: FDA-Public Use
  Company Number: BR-ABBOTT-12P-020-0909915-00

PATIENT
  Sex: Female
  Weight: 52 kg

DRUGS (5)
  1. HUMIRA [Suspect]
     Indication: RHEUMATOID ARTHRITIS
     Dates: start: 20080101, end: 20100101
  2. OMEPRAZOLE [Concomitant]
     Indication: GASTRIC DISORDER
  3. TEGRETOL [Concomitant]
     Indication: CONVULSION
     Dates: start: 19970101
  4. UNKNOWN DRUG [Concomitant]
     Indication: RHEUMATOID ARTHRITIS
  5. PHENOBARBITAL TAB [Concomitant]
     Indication: CONVULSION
     Dates: start: 19660101

REACTIONS (2)
  - CHRONIC OBSTRUCTIVE PULMONARY DISEASE [None]
  - MULTI-ORGAN FAILURE [None]
